FAERS Safety Report 15426818 (Version 1)
Quarter: 2018Q3

REPORT INFORMATION
  Report Type: Spontaneous
  Country: US (occurrence: US)
  Receive Date: 20180925
  Receipt Date: 20180925
  Transmission Date: 20181010
  Serious: No
  Sender: FDA-Public Use
  Company Number: US-INDIVIOR LIMITED-INDV-107421-2018

PATIENT
  Age: 56 Year
  Sex: Male

DRUGS (4)
  1. SUBOXONE [Suspect]
     Active Substance: BUPRENORPHINE HYDROCHLORIDE\NALOXONE HYDROCHLORIDE
     Indication: DRUG DEPENDENCE
     Dosage: 8MG, UNK
     Route: 060
  2. THYROID THERAPY [Concomitant]
     Active Substance: UNSPECIFIED INGREDIENT
     Indication: HYPOTHYROIDISM
     Dosage: UNK
     Route: 065
  3. ANTIHYPERTENSIVES [Concomitant]
     Active Substance: UNSPECIFIED INGREDIENT
     Indication: HYPERTENSION
     Dosage: UNK
     Route: 065
  4. SUBOXONE [Suspect]
     Active Substance: BUPRENORPHINE HYDROCHLORIDE\NALOXONE HYDROCHLORIDE
     Dosage: CUTTING AND TAKING UPTO 1MG TO HALF FILM A DAY
     Route: 060

REACTIONS (5)
  - Intentional underdose [Recovered/Resolved]
  - Arthritis [Not Recovered/Not Resolved]
  - Muscle spasms [Not Recovered/Not Resolved]
  - Wrong technique in product usage process [Not Recovered/Not Resolved]
  - Drug dependence [Not Recovered/Not Resolved]
